FAERS Safety Report 9155261 (Version 1)
Quarter: 2013Q1

REPORT INFORMATION
  Report Type: Spontaneous
  Country: US (occurrence: US)
  Receive Date: 20130311
  Receipt Date: 20130311
  Transmission Date: 20140127
  Serious: Yes (Hospitalization, Other)
  Sender: FDA-Public Use
  Company Number: US-ROCHE-1148759

PATIENT
  Sex: Male

DRUGS (3)
  1. PEGASYS [Suspect]
     Indication: HEPATITIS C
     Route: 058
     Dates: start: 20120903
  2. RIBAVIRIN [Suspect]
     Indication: HEPATITIS C
     Route: 048
     Dates: start: 20120903
  3. SEROQUEL [Concomitant]

REACTIONS (15)
  - Lethargy [Unknown]
  - Plicated tongue [Unknown]
  - Tongue disorder [Unknown]
  - Migraine [Unknown]
  - Tremor [Unknown]
  - Muscle disorder [Unknown]
  - Nausea [Unknown]
  - Retching [Unknown]
  - Pain in extremity [Unknown]
  - Pain [Unknown]
  - Pneumonia [Unknown]
  - Pulmonary fibrosis [Unknown]
  - Asthenia [Unknown]
  - Cough [Unknown]
  - Gait disturbance [Unknown]
